FAERS Safety Report 24890508 (Version 3)
Quarter: 2025Q3

REPORT INFORMATION
  Report Type: Spontaneous
  Country: JP (occurrence: JP)
  Receive Date: 20250127
  Receipt Date: 20250810
  Transmission Date: 20251020
  Serious: Yes (Other)
  Sender: ALEXION PHARMACEUTICALS
  Company Number: JP-ASTRAZENECA-250005191_010520_P_1

PATIENT
  Age: 8 Decade
  Sex: Female

DRUGS (6)
  1. TRUQAP [Suspect]
     Active Substance: CAPIVASERTIB
     Indication: Breast cancer recurrent
  2. TRUQAP [Suspect]
     Active Substance: CAPIVASERTIB
  3. TRUQAP [Suspect]
     Active Substance: CAPIVASERTIB
  4. TRUQAP [Suspect]
     Active Substance: CAPIVASERTIB
  5. FULVESTRANT [Suspect]
     Active Substance: FULVESTRANT
     Indication: Breast cancer
  6. FULVESTRANT [Suspect]
     Active Substance: FULVESTRANT
     Indication: Breast cancer recurrent

REACTIONS (4)
  - Interstitial lung disease [Not Recovered/Not Resolved]
  - Rash [Recovering/Resolving]
  - Thirst [Unknown]
  - Stomatitis [Unknown]
